FAERS Safety Report 21424034 (Version 1)
Quarter: 2022Q4

REPORT INFORMATION
  Report Type: Spontaneous
  Country: US (occurrence: US)
  Receive Date: 20221007
  Receipt Date: 20221007
  Transmission Date: 20230113
  Serious: Yes (Other)
  Sender: FDA-Public Use
  Company Number: US-MYLANLABS-2022M1111868

PATIENT
  Age: 81 Year
  Sex: Male

DRUGS (8)
  1. FLUOROURACIL [Suspect]
     Active Substance: FLUOROURACIL
     Indication: Adenocarcinoma of colon
     Dosage: UNK, CYCLE (6 CYCLES OF FOLFOX REGIMEN AND..)
     Route: 065
     Dates: start: 2018, end: 201812
  2. LEUCOVORIN [Suspect]
     Active Substance: LEUCOVORIN
     Indication: Adenocarcinoma of colon
     Dosage: UNK, CYCLE (6 CYCLES OF FOLFOX REGIMEN AND..)
     Route: 065
     Dates: start: 2018, end: 201812
  3. OXALIPLATIN [Suspect]
     Active Substance: OXALIPLATIN
     Indication: Adenocarcinoma of colon
     Dosage: UNK, CYCLE (6 CYCLES OF FOLFOX REGIMEN AND..)
     Route: 065
     Dates: start: 2018, end: 201812
  4. IRINOTECAN [Suspect]
     Active Substance: IRINOTECAN
     Indication: Adenocarcinoma of colon
     Dosage: UNK, CYCLE (FOLFIRI REGIMEN)
     Route: 065
     Dates: start: 201908
  5. BEVACIZUMAB [Suspect]
     Active Substance: BEVACIZUMAB
     Indication: Adenocarcinoma of colon
     Dosage: UNK
     Route: 065
     Dates: start: 201908
  6. CETUXIMAB [Suspect]
     Active Substance: CETUXIMAB
     Indication: Adenocarcinoma of colon
     Dosage: UNK, CYCLE (BIWEEKLY CYCLES)
     Route: 065
     Dates: start: 201903
  7. ENCORAFENIB [Suspect]
     Active Substance: ENCORAFENIB
     Indication: Adenocarcinoma of colon
     Dosage: UNK, CYCLE (BIWEEKLY CYCLES)
     Route: 065
     Dates: start: 201903
  8. BINIMETINIB [Concomitant]
     Active Substance: BINIMETINIB
     Indication: Adenocarcinoma of colon
     Dosage: UNK, CYCLE (BIWEEKLY CYCLES)
     Route: 065
     Dates: start: 201903

REACTIONS (2)
  - Disease progression [Unknown]
  - Drug ineffective [Unknown]
